FAERS Safety Report 18001593 (Version 1)
Quarter: 2020Q3

REPORT INFORMATION
  Report Type: Spontaneous
  Country: US (occurrence: US)
  Receive Date: 20200709
  Receipt Date: 20200709
  Transmission Date: 20201103
  Serious: Yes (Hospitalization, Other)
  Sender: FDA-Public Use
  Company Number: US-PURDUE PHARMA-USA-2020-0155322

PATIENT
  Age: 22 Year
  Sex: Male
  Weight: 88.5 kg

DRUGS (6)
  1. FOLVITE [Concomitant]
     Active Substance: FOLIC ACID
     Indication: PRODUCT USED FOR UNKNOWN INDICATION
     Dosage: 1 MG, DAILY
     Route: 048
     Dates: start: 20161006
  2. TYLENOL [Concomitant]
     Active Substance: ACETAMINOPHEN
     Indication: PAIN
  3. WELLBUTRIN XL [Concomitant]
     Active Substance: BUPROPION HYDROCHLORIDE
     Indication: PRODUCT USED FOR UNKNOWN INDICATION
     Dosage: 300 MG, DAILY
     Route: 048
     Dates: start: 20161107
  4. OXYCONTIN [Suspect]
     Active Substance: OXYCODONE HYDROCHLORIDE
     Indication: PRODUCT USED FOR UNKNOWN INDICATION
     Dosage: UNK
     Route: 048
  5. TYLENOL [Concomitant]
     Active Substance: ACETAMINOPHEN
     Indication: PYREXIA
     Dosage: 650 MG, Q4H PRN
     Route: 048
     Dates: start: 20161006, end: 20161010
  6. REMERON [Concomitant]
     Active Substance: MIRTAZAPINE
     Indication: PRODUCT USED FOR UNKNOWN INDICATION
     Dosage: 30 MG, DAILY
     Route: 048
     Dates: start: 20161010

REACTIONS (10)
  - Alcohol use disorder [Unknown]
  - Tobacco abuse [Unknown]
  - Drug dependence [Unknown]
  - Substance abuse [Unknown]
  - Insomnia [Unknown]
  - Suicidal ideation [Unknown]
  - Limb injury [Unknown]
  - Drug withdrawal syndrome [Unknown]
  - Injury [Unknown]
  - Mental disorder [Unknown]

NARRATIVE: CASE EVENT DATE: 20150714
